FAERS Safety Report 10390033 (Version 1)
Quarter: 2014Q1

REPORT INFORMATION
  Report Type: Spontaneous
  Country: US (occurrence: None)
  Receive Date: 20140306
  Receipt Date: 20140306
  Transmission Date: 20141002
  Serious: Yes (Hospitalization, Other)
  Sender: FDA-Public Use
  Company Number: 163-21880-13012537

PATIENT
  Age: 74 Year
  Sex: Male

DRUGS (9)
  1. REVLIMID (LENALIDOMIDE) (10 MILLIGRAM, CAPSULES) [Suspect]
     Indication: MYELODYSPLASTIC SYNDROME
     Route: 048
     Dates: start: 20120829
  2. REVLIMID (LENALIDOMIDE) (10 MILLIGRAM, CAPSULES) [Suspect]
     Indication: ACUTE MYELOID LEUKAEMIA
     Route: 048
     Dates: start: 20120829
  3. ALBUTEROL SULFATE (SALBUTAMOL SULFATE) (UNKNOWN) [Concomitant]
  4. BENZ ONATATE (BENZONATATE) (UNKNOWN) [Concomitant]
  5. AYR SWAB (SODIUM CHLORIDE) (UNKNOWN) [Concomitant]
  6. COLACE(DOCUSATE SODIUM)(CAPSULES) [Concomitant]
  7. KLOR-CON 10(POTASSIUM CHLORIDE)(UNKNOWN) [Concomitant]
  8. PROCHLORPERAZINE(PROCHLORPERAZINE)(UNKNOWN) [Concomitant]
  9. PROMETHAZINE HCL(PROMETHAZINE HYDROCHLORIDE)(UNKNOWN) [Concomitant]

REACTIONS (3)
  - Febrile neutropenia [None]
  - Pneumonia fungal [None]
  - Pneumonia bacterial [None]
